FAERS Safety Report 7056809-1 (Version None)
Quarter: 2010Q4

REPORT INFORMATION
  Report Type: 
  Country: None (occurrence: None)
  Receive Date: 20101022
  Receipt Date: 20101012
  Transmission Date: 20110411
  Serious: Yes (Other)
  Sender: FDA-Public Use
  Company Number: CA-JNJFOC-20101003471

PATIENT
  Sex: Female
  Weight: 59 kg

DRUGS (5)
  1. REMICADE [Suspect]
     Indication: COLITIS ULCERATIVE
     Route: 042
  2. PREDNISONE [Concomitant]
  3. ASACOL [Concomitant]
  4. METFORMIN [Concomitant]
  5. GLUCONORM NOS [Concomitant]

REACTIONS (2)
  - BLOOD GLUCOSE DECREASED [None]
  - DIZZINESS [None]
